FAERS Safety Report 9716800 (Version 2)
Quarter: 2013Q4

REPORT INFORMATION
  Report Type: Spontaneous
  Country: JP (occurrence: JP)
  Receive Date: 20131127
  Receipt Date: 20131127
  Transmission Date: 20140711
  Serious: Yes (Other)
  Sender: FDA-Public Use
  Company Number: JP-OTSUKA-JP-2013-15440

PATIENT
  Age: 70 Year
  Sex: Male

DRUGS (2)
  1. PLETAAL [Suspect]
     Indication: CEREBRAL INFARCTION
     Dosage: 100 MG MILLIGRAM(S), DAILY DOSE
     Route: 048
  2. ANTIPSYCHOTICS [Suspect]
     Indication: RESTLESSNESS
     Dosage: UNK
     Route: 065

REACTIONS (2)
  - Hyponatraemia [Recovered/Resolved]
  - Restlessness [Unknown]
